FAERS Safety Report 5558356-2 (Version None)
Quarter: 2007Q4

REPORT INFORMATION
  Report Type: 
  Country: None (occurrence: None)
  Receive Date: 20071214
  Receipt Date: 20071205
  Transmission Date: 20080405
  Serious: Yes (Disabling, Other)
  Sender: FDA-Public Use
  Company Number: US-PFIZER INC-2007101989

PATIENT
  Sex: Female

DRUGS (2)
  1. ALDACTONE [Suspect]
     Indication: MENOPAUSAL SYMPTOMS
  2. ALDACTONE [Suspect]
     Indication: FLUID RETENTION

REACTIONS (2)
  - DIABETES MELLITUS [None]
  - DISABILITY [None]
